FAERS Safety Report 24956402 (Version 2)
Quarter: 2025Q2

REPORT INFORMATION
  Report Type: Spontaneous
  Country: JP (occurrence: JP)
  Receive Date: 20250211
  Receipt Date: 20250513
  Transmission Date: 20250716
  Serious: Yes (Hospitalization, Other)
  Sender: BRISTOL-MYERS SQUIBB COMPANY
  Company Number: JP-ONO-2025JP001950

PATIENT
  Age: 83 Year
  Sex: Male

DRUGS (1)
  1. OPDIVO [Suspect]
     Active Substance: NIVOLUMAB
     Indication: Pleural mesothelioma malignant
     Route: 041

REACTIONS (4)
  - Cholangitis infective [Not Recovered/Not Resolved]
  - Bacteraemia [Not Recovered/Not Resolved]
  - Immune-mediated cholangitis [Recovering/Resolving]
  - Off label use [Unknown]
